FAERS Safety Report 5000990-2 (Version None)
Quarter: 2006Q2

REPORT INFORMATION
  Report Type: 
  Country: None (occurrence: None)
  Receive Date: 20060512
  Receipt Date: 20060503
  Transmission Date: 20061013
  Serious: Yes (Hospitalization)
  Sender: FDA-Public Use
  Company Number: 2006CG00807

PATIENT
  Age: 23 Year
  Sex: Male
  Weight: 50 kg

DRUGS (5)
  1. ENTOCORT [Suspect]
     Indication: GASTROINTESTINAL DISORDER
     Route: 048
     Dates: start: 20060201, end: 20060310
  2. ENTOCORT [Suspect]
     Indication: INTESTINAL VILLI ATROPHY
     Route: 048
     Dates: start: 20060201, end: 20060310
  3. PENTASA [Suspect]
     Indication: GASTROINTESTINAL DISORDER
     Route: 048
     Dates: start: 20060201, end: 20060310
  4. PENTASA [Suspect]
     Indication: INTESTINAL VILLI ATROPHY
     Route: 048
     Dates: start: 20060201, end: 20060310
  5. ALDACTONE [Suspect]
     Indication: ASCITES
     Route: 048
     Dates: start: 20060201, end: 20060310

REACTIONS (3)
  - EPISTAXIS [None]
  - LEUKOPENIA [None]
  - THROMBOCYTOPENIA [None]
